FAERS Safety Report 8854917 (Version 2)
Quarter: 2012Q4

REPORT INFORMATION
  Report Type: 
  Country: JP (occurrence: JP)
  Receive Date: 20121023
  Receipt Date: 20121128
  Transmission Date: 20130627
  Serious: Yes (Other)
  Sender: FDA-Public Use
  Company Number: JP-009507513-1210JPN007392

PATIENT
  Age: 57 Year
  Sex: Male
  Weight: 69 kg

DRUGS (9)
  1. PEGINTRON [Suspect]
     Indication: CHRONIC HEPATITIS C
     Dosage: 1.5 Microgram per kilogram, UNK
     Route: 058
  2. REBETOL [Suspect]
     Indication: CHRONIC HEPATITIS C
     Dosage: 800 mg, qd
     Route: 048
     Dates: start: 20120811, end: 20120825
  3. REBETOL [Suspect]
     Dosage: 600 mg, qd
     Route: 048
     Dates: start: 20120826, end: 20120921
  4. REBETOL [Suspect]
     Dosage: 800 mg, qd
     Route: 048
     Dates: start: 20120922
  5. TELAVIC [Suspect]
     Indication: CHRONIC HEPATITIS C
     Dosage: 2250 milligrams, qd
     Route: 048
     Dates: start: 20120811, end: 20120910
  6. TELAVIC [Suspect]
     Dosage: 1500 milligrams, UNK
     Route: 048
     Dates: start: 20120913, end: 20121102
  7. GASMOTIN [Concomitant]
     Indication: PROPHYLAXIS
     Dosage: 15 mg, UNK, Formulation: POR (unspecified)
     Route: 048
  8. PARIET [Concomitant]
     Indication: PROPHYLAXIS
     Dosage: 10 mg, qd
     Route: 048
  9. ALLOPURINOL [Concomitant]
     Indication: PROPHYLAXIS
     Dosage: 200 mg, qd
     Route: 048

REACTIONS (1)
  - Skin disorder [Not Recovered/Not Resolved]
